FAERS Safety Report 4459897-1 (Version None)
Quarter: 2004Q3

REPORT INFORMATION
  Report Type: 
  Country: None (occurrence: None)
  Receive Date: 20040928
  Receipt Date: 20030902
  Transmission Date: 20050211
  Serious: No
  Sender: FDA-Public Use
  Company Number: US-GLAXOSMITHKLINE-A0424316A

PATIENT
  Age: 41 Year
  Sex: Female

DRUGS (3)
  1. SEREVENT [Suspect]
     Indication: ASTHMA
     Route: 055
     Dates: end: 20030831
  2. ALBUTEROL [Concomitant]
     Indication: ASTHMA
  3. BECONASE [Concomitant]
     Route: 045

REACTIONS (1)
  - ASTHMA [None]
